FAERS Safety Report 9364782 (Version 2)
Quarter: 2013Q3

REPORT INFORMATION
  Report Type: Spontaneous
  Country: DE (occurrence: CA)
  Receive Date: 20130624
  Receipt Date: 20130812
  Transmission Date: 20140515
  Serious: Yes (Other)
  Sender: FDA-Public Use
  Company Number: CA-FRI-1000046114

PATIENT
  Age: 72 Year
  Sex: Female

DRUGS (1)
  1. ROFLUMILAST [Suspect]
     Indication: CHRONIC OBSTRUCTIVE PULMONARY DISEASE
     Dosage: 0.25 DF
     Dates: start: 20130610

REACTIONS (2)
  - Rectal haemorrhage [Unknown]
  - Off label use [Unknown]
